FAERS Safety Report 21558353 (Version 2)
Quarter: 2022Q4

REPORT INFORMATION
  Report Type: Spontaneous
  Country: US (occurrence: None)
  Receive Date: 20221107
  Receipt Date: 20221116
  Transmission Date: 20230112
  Serious: Yes (Hospitalization, Other)
  Sender: FDA-Public Use
  Company Number: US-MLMSERVICE-20221019-3863812-1

PATIENT
  Age: 60 Year
  Sex: Male

DRUGS (2)
  1. METHOTREXATE [Suspect]
     Active Substance: METHOTREXATE
     Indication: Retinopathy proliferative
     Dosage: 400 MICROGRAMS / 0.1ML, ALL 0.1ML
  2. METHOTREXATE [Suspect]
     Active Substance: METHOTREXATE
     Dosage: 400 MICROGRAMS / 0.1ML, ALL 0.1ML

REACTIONS (2)
  - Corneal disorder [Recovered/Resolved]
  - Corneal toxicity [Recovered/Resolved]
